FAERS Safety Report 11744689 (Version 2)
Quarter: 2015Q4

REPORT INFORMATION
  Report Type: Report from Study
  Country: US (occurrence: US)
  Receive Date: 20151116
  Receipt Date: 20151215
  Transmission Date: 20160304
  Serious: Yes (Hospitalization, Other)
  Sender: FDA-Public Use
  Company Number: US-GILEAD-2015-0180930

PATIENT
  Age: 29 Year
  Sex: Male

DRUGS (1)
  1. LEDIPASVIR/SOFOSBUVIR [Suspect]
     Active Substance: LEDIPASVIR\SOFOSBUVIR
     Indication: CHRONIC HEPATITIS C
     Dosage: UNK
     Route: 048

REACTIONS (10)
  - Diplopia [Unknown]
  - Pollakiuria [Unknown]
  - Eating disorder [Unknown]
  - Malaise [Unknown]
  - Fatigue [Unknown]
  - Renal haemorrhage [Unknown]
  - Back pain [Unknown]
  - Weight decreased [Unknown]
  - Loss of consciousness [Unknown]
  - Dizziness [Unknown]
